FAERS Safety Report 20562225 (Version 1)
Quarter: 2022Q1

REPORT INFORMATION
  Report Type: Spontaneous
  Country: US (occurrence: None)
  Receive Date: 20220307
  Receipt Date: 20220307
  Transmission Date: 20220423
  Serious: No
  Sender: FDA-Public Use
  Company Number: None

PATIENT

DRUGS (1)
  1. ZYPREXA [Suspect]
     Active Substance: OLANZAPINE

REACTIONS (7)
  - Incorrect route of product administration [None]
  - Tachycardia [None]
  - Orthostatic hypotension [None]
  - Hallucination [None]
  - Confusional state [None]
  - Condition aggravated [None]
  - Wrong technique in product usage process [None]
